FAERS Safety Report 24333968 (Version 3)
Quarter: 2024Q4

REPORT INFORMATION
  Report Type: Spontaneous
  Country: US (occurrence: US)
  Receive Date: 20240918
  Receipt Date: 20241225
  Transmission Date: 20250114
  Serious: No
  Sender: SANOFI AVENTIS
  Company Number: US-SA-2024SA266037

PATIENT
  Age: 3 Year
  Sex: Male

DRUGS (2)
  1. DUPIXENT [Suspect]
     Active Substance: DUPILUMAB
     Indication: Dermatitis atopic
     Dosage: 300 MG, Q4W
     Route: 058
     Dates: start: 20240103, end: 20240901
  2. DUPIXENT [Suspect]
     Active Substance: DUPILUMAB
     Indication: Eczema
     Dosage: 300 MG, Q4W
     Route: 058
     Dates: start: 20241211

REACTIONS (6)
  - Dermatitis atopic [Unknown]
  - Arthralgia [Not Recovered/Not Resolved]
  - Eczema [Unknown]
  - Pruritus [Not Recovered/Not Resolved]
  - Erythema [Unknown]
  - Product administered at inappropriate site [Unknown]

NARRATIVE: CASE EVENT DATE: 20240101
